FAERS Safety Report 6100045-X (Version None)
Quarter: 2009Q1

REPORT INFORMATION
  Report Type: 
  Country: None (occurrence: None)
  Receive Date: 20090303
  Receipt Date: 20090224
  Transmission Date: 20090719
  Serious: Yes (Hospitalization)
  Sender: FDA-Public Use
  Company Number: B0561317A

PATIENT
  Age: 68 Year
  Sex: Male

DRUGS (2)
  1. ZOVIRAX [Suspect]
     Indication: HERPES ZOSTER
     Dosage: 800MG PER DAY
     Route: 048
     Dates: start: 20090209, end: 20090216
  2. CRAVIT [Suspect]
     Route: 048

REACTIONS (3)
  - ANOREXIA [None]
  - DIZZINESS [None]
  - MEMORY IMPAIRMENT [None]
